FAERS Safety Report 8555456-X (Version None)
Quarter: 2012Q3

REPORT INFORMATION
  Report Type: 
  Country: None (occurrence: None)
  Receive Date: 20120731
  Receipt Date: 20120417
  Transmission Date: 20120928
  Serious: Yes (Other)
  Sender: FDA-Public Use
  Company Number: US-ASTRAZENECA-2011SE09585

PATIENT
  Age: 60 Year
  Sex: Female

DRUGS (7)
  1. ELAVIL [Concomitant]
  2. KLONOPIN [Concomitant]
  3. SEROQUEL [Suspect]
     Indication: BIPOLAR DISORDER
     Route: 048
  4. SEROQUEL [Suspect]
     Route: 048
     Dates: start: 20090101
  5. SEROQUEL [Suspect]
     Route: 048
  6. LITHIUM CARBONATE [Concomitant]
  7. SEROQUEL [Suspect]
     Route: 048

REACTIONS (7)
  - ABDOMINAL DISCOMFORT [None]
  - CRYING [None]
  - DIARRHOEA [None]
  - DEHYDRATION [None]
  - SUICIDAL IDEATION [None]
  - NEGATIVE THOUGHTS [None]
  - DECREASED APPETITE [None]
